FAERS Safety Report 24810478 (Version 2)
Quarter: 2025Q1

REPORT INFORMATION
  Report Type: Report from Study
  Country: TH (occurrence: TH)
  Receive Date: 20250106
  Receipt Date: 20250325
  Transmission Date: 20250408
  Serious: Yes (Hospitalization)
  Sender: BAYER HEALTHCARE PHARMACEUTICALS INC.
  Company Number: TH-BAYER-2025A001559

PATIENT
  Age: 70 Year
  Sex: Female

DRUGS (1)
  1. STIVARGA [Suspect]
     Active Substance: REGORAFENIB MONOHYDRATE
     Indication: Colorectal cancer
     Dates: start: 20241209, end: 20241211

REACTIONS (8)
  - Cough [Unknown]
  - Vomiting [Unknown]
  - Pyrexia [Unknown]
  - Drug hypersensitivity [None]
  - Feeding disorder [Unknown]
  - Chapped lips [Unknown]
  - Lip pain [Unknown]
  - Stomatitis [Unknown]

NARRATIVE: CASE EVENT DATE: 20241212
